FAERS Safety Report 5497059-X (Version None)
Quarter: 2007Q4

REPORT INFORMATION
  Report Type: 
  Country: None (occurrence: None)
  Receive Date: 20071025
  Receipt Date: 20071015
  Transmission Date: 20080405
  Serious: Yes (Other)
  Sender: FDA-Public Use
  Company Number: BR-ROCHE-521444

PATIENT
  Age: 18 Year
  Sex: Male

DRUGS (2)
  1. ISOTRETINOIN [Suspect]
     Indication: DRUG USE FOR UNKNOWN INDICATION
     Dosage: STRENGTH: 10-20 MG.
     Route: 048
     Dates: start: 20070325, end: 20070601
  2. ISOTRETINOIN [Suspect]
     Dosage: STRENGTH: 10-20 MG.
     Route: 048
     Dates: start: 20070901, end: 20070901

REACTIONS (3)
  - APHTHOUS STOMATITIS [None]
  - GINGIVAL BLEEDING [None]
  - STOMATITIS [None]
